FAERS Safety Report 20541575 (Version 1)
Quarter: 2022Q1

REPORT INFORMATION
  Report Type: Spontaneous
  Country: JM (occurrence: JM)
  Receive Date: 20220302
  Receipt Date: 20220302
  Transmission Date: 20220423
  Serious: Yes (Hospitalization)
  Sender: FDA-Public Use
  Company Number: JM-BAYER-2021A259748

PATIENT
  Age: 62 Year
  Sex: Female

DRUGS (1)
  1. XARELTO [Suspect]
     Active Substance: RIVAROXABAN
     Indication: Prophylaxis
     Dosage: 15 MG, QD
     Route: 048

REACTIONS (2)
  - Renal impairment [Unknown]
  - Off label use [Unknown]
